FAERS Safety Report 8475730-5 (Version None)
Quarter: 2012Q2

REPORT INFORMATION
  Report Type: 
  Country: None (occurrence: None)
  Receive Date: 20120628
  Receipt Date: 20120620
  Transmission Date: 20120825
  Serious: Yes (Death, Hospitalization, Disabling, Other)
  Sender: FDA-Public Use
  Company Number: KZ-GLAXOSMITHKLINE-B0810698A

PATIENT

DRUGS (4)
  1. TIMENTIN [Suspect]
     Indication: GASTROINTESTINAL INFECTION
     Dosage: .2G TWICE PER DAY
     Route: 042
     Dates: start: 20120619, end: 20120619
  2. METRONIDAZOLE [Concomitant]
     Indication: GASTROINTESTINAL INFECTION
     Route: 065
     Dates: start: 20120602, end: 20120617
  3. CEFTRIAXONE [Concomitant]
     Indication: GASTROINTESTINAL INFECTION
     Route: 065
     Dates: start: 20120602, end: 20120617
  4. NEUPOGEN [Concomitant]
     Indication: GASTROINTESTINAL INFECTION
     Route: 065
     Dates: start: 20120618, end: 20120620

REACTIONS (2)
  - SEPSIS [None]
  - GASTROINTESTINAL PERFORATION [None]
